FAERS Safety Report 12518975 (Version 5)
Quarter: 2016Q3

REPORT INFORMATION
  Report Type: Report from Study
  Country: BE (occurrence: BE)
  Receive Date: 20160630
  Receipt Date: 20160910
  Transmission Date: 20161109
  Serious: Yes (Other)
  Sender: FDA-Public Use
  Company Number: BE-AMGEN-BELNI2016081984

PATIENT
  Age: 27 Year
  Sex: Male

DRUGS (5)
  1. ACICLOVIR [Concomitant]
     Active Substance: ACYCLOVIR
     Dosage: 400 MG, TID
     Route: 048
     Dates: start: 201411
  2. EUSAPRIM [Concomitant]
     Dosage: 800 MG, 3 TIMES/WK
     Route: 048
     Dates: start: 201411
  3. NOVOMIX [Concomitant]
     Active Substance: INSULIN ASPART
     Dosage: 14 UNIT, UNK
     Route: 058
     Dates: start: 201411
  4. PANTOMED [Concomitant]
     Active Substance: DEXPANTHENOL
     Dosage: 40 MG, QD
     Route: 048
     Dates: start: 201411
  5. BLINATUMOMAB [Suspect]
     Active Substance: BLINATUMOMAB
     Indication: ACUTE LYMPHOCYTIC LEUKAEMIA
     Dosage: 28 MUG, QD CONTINUOUS DURING 4 WEEKS AND 2 WEEKS STOP
     Route: 042
     Dates: start: 20160202, end: 20160530

REACTIONS (1)
  - Acute lymphocytic leukaemia recurrent [Unknown]
